FAERS Safety Report 8172043-6 (Version None)
Quarter: 2012Q1

REPORT INFORMATION
  Report Type: 
  Country: None (occurrence: None)
  Receive Date: 20120228
  Receipt Date: 20120222
  Transmission Date: 20120608
  Serious: Yes (Hospitalization)
  Sender: FDA-Public Use
  Company Number: JP-B.I. PHARMACEUTICALS,INC./RIDGEFIELD-2012-BP-03495NB

PATIENT

DRUGS (1)
  1. PRADAXA [Suspect]
     Route: 048

REACTIONS (6)
  - BIRTH MARK [None]
  - CARDIAC FAILURE [None]
  - PULMONARY OEDEMA [None]
  - NAUSEA [None]
  - GENERALISED OEDEMA [None]
  - RENAL IMPAIRMENT [None]
